FAERS Safety Report 25071604 (Version 2)
Quarter: 2025Q1

REPORT INFORMATION
  Report Type: Report from Study
  Country: US (occurrence: US)
  Receive Date: 20250313
  Receipt Date: 20250328
  Transmission Date: 20250409
  Serious: Yes (Hospitalization, Other)
  Sender: ABBVIE
  Company Number: US-ABBVIE-6169083

PATIENT
  Age: 40 Year
  Sex: Male

DRUGS (2)
  1. SKYRIZI [Suspect]
     Active Substance: RISANKIZUMAB-RZAA
     Indication: Product used for unknown indication
     Route: 058
     Dates: start: 20190524
  2. PROTONIX [Concomitant]
     Active Substance: PANTOPRAZOLE SODIUM
     Indication: Gastrointestinal disorder

REACTIONS (5)
  - Cholelithiasis [Recovered/Resolved]
  - Cervical vertebral fracture [Recovering/Resolving]
  - Biliary colic [Recovering/Resolving]
  - Pancreatitis [Recovering/Resolving]
  - Pseudocyst [Recovered/Resolved]

NARRATIVE: CASE EVENT DATE: 20210101
